FAERS Safety Report 6976083-1 (Version None)
Quarter: 2010Q3

REPORT INFORMATION
  Report Type: 
  Country: None (occurrence: None)
  Receive Date: 20100910
  Receipt Date: 20100903
  Transmission Date: 20110219
  Serious: Yes (Other)
  Sender: FDA-Public Use
  Company Number: CHPA2010US14272

PATIENT
  Sex: Male

DRUGS (1)
  1. MYOFLEX ANALGESIC CREME (NCH) [Suspect]
     Dosage: UNK, UNK
     Route: 061

REACTIONS (1)
  - COLITIS [None]
